FAERS Safety Report 25976414 (Version 1)
Quarter: 2025Q4

REPORT INFORMATION
  Report Type: Spontaneous
  Country: JP (occurrence: JP)
  Receive Date: 20251029
  Receipt Date: 20251029
  Transmission Date: 20260117
  Serious: Yes (Other)
  Sender: ABBVIE
  Company Number: JP-ABBVIE-6523053

PATIENT
  Age: 71 Year
  Sex: Male

DRUGS (2)
  1. ASENAPINE MALEATE [Suspect]
     Active Substance: ASENAPINE MALEATE
     Indication: Product used for unknown indication
     Dosage: FORM STRENGTH : 10 MILLIGRAM
     Route: 050
     Dates: start: 202011, end: 202012
  2. ASENAPINE MALEATE [Suspect]
     Active Substance: ASENAPINE MALEATE
     Indication: Product used for unknown indication
     Dosage: FORM STRENGTH : 5 MILLIGRAM
     Route: 050
     Dates: start: 202003, end: 202012

REACTIONS (4)
  - Mastication disorder [Unknown]
  - Parkinsonism [Unknown]
  - Dysphagia [Unknown]
  - Dyslalia [Unknown]
